FAERS Safety Report 26091387 (Version 1)
Quarter: 2025Q4

REPORT INFORMATION
  Report Type: Spontaneous
  Country: EU (occurrence: EU)
  Receive Date: 20251126
  Receipt Date: 20251126
  Transmission Date: 20260118
  Serious: Yes (Other)
  Sender: AUROBINDO
  Company Number: EU-BAYER-2025A144452

PATIENT
  Age: 38 Year
  Sex: Female

DRUGS (2)
  1. NIFEDIPINE [Suspect]
     Active Substance: NIFEDIPINE
     Indication: Gestational hypertension
     Dosage: UNK
     Route: 065
  2. ASPIRIN [Suspect]
     Active Substance: ASPIRIN
     Indication: Gestational hypertension
     Dosage: UNK
     Route: 065

REACTIONS (10)
  - Blood loss anaemia [Unknown]
  - Hepatic haematoma [Unknown]
  - Subcapsular hepatic haematoma [Unknown]
  - Haemoperitoneum [Unknown]
  - Hepatic rupture [Unknown]
  - Maternal exposure during pregnancy [Unknown]
  - Product use in unapproved indication [Unknown]
  - Product prescribing issue [Unknown]
  - Premature delivery [Unknown]
  - Contraindicated product administered [Unknown]
